FAERS Safety Report 18852227 (Version 1)
Quarter: 2021Q1

REPORT INFORMATION
  Report Type: Spontaneous
  Country: US (occurrence: US)
  Receive Date: 20210205
  Receipt Date: 20210205
  Transmission Date: 20210420
  Serious: Yes (Hospitalization)
  Sender: FDA-Public Use
  Company Number: None

PATIENT
  Age: 56 Year
  Sex: Female

DRUGS (3)
  1. CAPECITABINE. [Suspect]
     Active Substance: CAPECITABINE
     Indication: HYPOOSMOLAR STATE
  2. CAPECITABINE. [Suspect]
     Active Substance: CAPECITABINE
     Indication: HYPONATRAEMIA
  3. ONDANSETRON [Concomitant]
     Active Substance: ONDANSETRON

REACTIONS (6)
  - Anaemia [None]
  - Nausea [None]
  - Fatigue [None]
  - Blood potassium decreased [None]
  - Stomatitis [None]
  - Blood magnesium decreased [None]

NARRATIVE: CASE EVENT DATE: 20210204
